FAERS Safety Report 23246168 (Version 1)
Quarter: 2023Q4

REPORT INFORMATION
  Report Type: Spontaneous
  Country: DE (occurrence: DE)
  Receive Date: 20231130
  Receipt Date: 20231130
  Transmission Date: 20240110
  Serious: Yes (Other)
  Sender: FDA-Public Use
  Company Number: DE-LEO Pharma-352668

PATIENT
  Age: 84 Year
  Sex: Male

DRUGS (5)
  1. TACLONEX [Suspect]
     Active Substance: BETAMETHASONE DIPROPIONATE\CALCIPOTRIENE\CALCIPOTRIENE HYDRATE
     Indication: Nail psoriasis
     Dosage: 50 MICROGRAM/G + 0,5 MG/G / GEL / ONCE DAILY IN THE EVENING / TOPICAL / TO THE TOENAILS UP TO THE BA
     Route: 003
     Dates: start: 20230310
  2. TACLONEX [Suspect]
     Active Substance: BETAMETHASONE DIPROPIONATE\CALCIPOTRIENE\CALCIPOTRIENE HYDRATE
     Indication: Nail psoriasis
     Dosage: 50 MICROGRAM/G + 0,5 MG/G / GEL / ONCE DAILY IN THE EVENING / TOPICAL / TO THE TOENAILS UP TO THE BA
     Route: 003
     Dates: start: 20230310
  3. TACLONEX [Suspect]
     Active Substance: BETAMETHASONE DIPROPIONATE\CALCIPOTRIENE\CALCIPOTRIENE HYDRATE
     Indication: Nail psoriasis
     Dosage: 50 MICROGRAM/G + 0,5 MG/G / GEL / ONCE DAILY IN THE EVENING / TOPICAL / TO THE TOENAILS UP TO THE BA
     Route: 003
     Dates: start: 20230310
  4. RAMIPRIL [Concomitant]
     Active Substance: RAMIPRIL
     Indication: Product used for unknown indication
     Dosage: NO POSOLOGY INFORMATION WAS REPORTED
  5. CLOPIDOGREL [Concomitant]
     Active Substance: CLOPIDOGREL BISULFATE
     Indication: Product used for unknown indication
     Dosage: NO POSOLOGY INFORMATION REPORTED

REACTIONS (3)
  - Toe amputation [Unknown]
  - Product use in unapproved indication [Unknown]
  - Skin ulcer [Unknown]

NARRATIVE: CASE EVENT DATE: 20230310
